FAERS Safety Report 6508412-7 (Version None)
Quarter: 2009Q4

REPORT INFORMATION
  Report Type: 
  Country: None (occurrence: None)
  Receive Date: 20091221
  Receipt Date: 20091208
  Transmission Date: 20100525
  Serious: No
  Sender: FDA-Public Use
  Company Number: US-ASTRAZENECA-2009SE06658

PATIENT
  Age: 19933 Day
  Sex: Female
  Weight: 59 kg

DRUGS (6)
  1. CRESTOR [Suspect]
     Indication: BLOOD CHOLESTEROL INCREASED
     Route: 048
     Dates: start: 20080401
  2. CRESTOR [Suspect]
     Route: 048
     Dates: end: 20080930
  3. LISINOPRIL [Concomitant]
     Route: 048
  4. LISINOPRIL [Concomitant]
     Route: 048
  5. LASIX [Concomitant]
  6. LASIX [Concomitant]

REACTIONS (14)
  - ABDOMINAL DISCOMFORT [None]
  - ABDOMINAL PAIN [None]
  - BURSITIS [None]
  - DEPRESSION [None]
  - FOOT FRACTURE [None]
  - GRAND MAL CONVULSION [None]
  - MYALGIA [None]
  - NAUSEA [None]
  - OEDEMA [None]
  - PANIC ATTACK [None]
  - POLYARTHRITIS [None]
  - VOMITING [None]
  - WEIGHT INCREASED [None]
  - WRIST FRACTURE [None]
